FAERS Safety Report 7383197-3 (Version None)
Quarter: 2011Q1

REPORT INFORMATION
  Report Type: 
  Country: None (occurrence: None)
  Receive Date: 20110330
  Receipt Date: 20110316
  Transmission Date: 20110831
  Serious: Yes (Hospitalization, Disabling)
  Sender: FDA-Public Use
  Company Number: US-ELI_LILLY_AND_COMPANY-US201011005467

PATIENT
  Sex: Female

DRUGS (8)
  1. CALTRATE + VITAMIN D [Concomitant]
  2. MELOXICAM [Concomitant]
  3. FORTEO [Suspect]
     Indication: OSTEOPOROSIS
     Dosage: 20 UG, DAILY (1/D)
     Dates: start: 20101101
  4. ADVAIR DISKUS 100/50 [Concomitant]
  5. HYDROCHLOROTHIAZIDE [Concomitant]
     Dosage: 12.5 MG, UNK
  6. VALIUM [Concomitant]
  7. ANALGESICS [Concomitant]
     Indication: PAIN
  8. VICODIN [Concomitant]

REACTIONS (7)
  - SKIN DISORDER [None]
  - OEDEMA PERIPHERAL [None]
  - NASOPHARYNGITIS [None]
  - PNEUMONIA [None]
  - CHRONIC OBSTRUCTIVE PULMONARY DISEASE [None]
  - GAIT DISTURBANCE [None]
  - DYSPNOEA [None]
